FAERS Safety Report 15289775 (Version 1)
Quarter: 2018Q3

REPORT INFORMATION
  Report Type: Spontaneous
  Country: JP (occurrence: JP)
  Receive Date: 20180817
  Receipt Date: 20180817
  Transmission Date: 20181010
  Serious: Yes (Death, Hospitalization)
  Sender: FDA-Public Use
  Company Number: JP-ROCHE-2060328

PATIENT
  Age: 89 Year
  Sex: Female

DRUGS (11)
  1. NORVASC [Concomitant]
     Active Substance: AMLODIPINE BESYLATE
     Route: 048
  2. ALDACTONE A [Concomitant]
     Active Substance: SPIRONOLACTONE
     Route: 048
  3. MUCOSOLVAN L [Concomitant]
     Active Substance: AMBROXOL HYDROCHLORIDE
     Route: 048
  4. NEUROTROPIN (JAPAN) [Concomitant]
     Route: 042
  5. MOHRUS TAPE L [Concomitant]
     Active Substance: KETOPROFEN
     Route: 061
  6. BORRAZA?G [Concomitant]
     Active Substance: LIDOCAINE\TRIBENOSIDE
     Route: 003
  7. MEILAX [Concomitant]
     Active Substance: ETHYL LOFLAZEPATE
     Route: 048
  8. MAGNESIUM OXIDE. [Concomitant]
     Active Substance: MAGNESIUM OXIDE
     Route: 048
  9. URSO [Concomitant]
     Active Substance: URSODIOL
     Route: 048
  10. BONVIVA [Suspect]
     Active Substance: IBANDRONATE SODIUM
     Indication: OSTEOPOROSIS
     Dosage: ON 13/DEC/2017, SHE RECEIVED MOST RECENT DOSE OF IBANDRONATE SODIUM PRIOR TO THE EVENT.
     Route: 042
     Dates: start: 20160511
  11. BIO?THREE [Concomitant]
     Active Substance: HERBALS
     Route: 048

REACTIONS (4)
  - Osteonecrosis of jaw [Unknown]
  - Hepatitis [Unknown]
  - Cholangitis [Recovering/Resolving]
  - Marasmus [Fatal]

NARRATIVE: CASE EVENT DATE: 2018
